FAERS Safety Report 12963578 (Version 1)
Quarter: 2016Q4

REPORT INFORMATION
  Report Type: Other
  Country: DE (occurrence: DE)
  Receive Date: 20161122
  Receipt Date: 20161122
  Transmission Date: 20170207
  Serious: Yes (Other)
  Sender: FDA-Public Use
  Company Number: DE-ENDO PHARMACEUTICALS INC-2016-006875

PATIENT
  Sex: Male

DRUGS (3)
  1. PARACETAMOL [Suspect]
     Active Substance: ACETAMINOPHEN
     Indication: PRODUCT USED FOR UNKNOWN INDICATION
     Route: 065
  2. NORETHISTERONE ENANTATE [Suspect]
     Active Substance: NORETHINDRONE ENANTHATE
     Indication: CHEMICAL CONTRACEPTION
     Route: 030
  3. AVEED [Suspect]
     Active Substance: TESTOSTERONE UNDECANOATE
     Indication: CHEMICAL CONTRACEPTION
     Route: 030

REACTIONS (1)
  - Intentional overdose [Unknown]
